FAERS Safety Report 8114909-9 (Version None)
Quarter: 2012Q1

REPORT INFORMATION
  Report Type: 
  Country: None (occurrence: None)
  Receive Date: 20120206
  Receipt Date: 20120130
  Transmission Date: 20120608
  Serious: Yes (Other)
  Sender: FDA-Public Use
  Company Number: US-JNJFOC-20120113300

PATIENT
  Sex: Female
  Weight: 63.5 kg

DRUGS (3)
  1. TOPAMAX [Suspect]
     Indication: MIGRAINE PROPHYLAXIS
     Route: 048
  2. TOPAMAX [Suspect]
     Route: 048
  3. DEPO-PROVERA [Concomitant]
     Indication: CONTRACEPTION
     Route: 065
     Dates: start: 20000101

REACTIONS (7)
  - GASTROINTESTINAL DISORDER [None]
  - ARTHRALGIA [None]
  - VOMITING [None]
  - GASTROOESOPHAGEAL REFLUX DISEASE [None]
  - ADVERSE DRUG REACTION [None]
  - DEPRESSION [None]
  - INCORRECT DOSE ADMINISTERED [None]
